FAERS Safety Report 7934905-1 (Version None)
Quarter: 2011Q4

REPORT INFORMATION
  Report Type: 
  Country: None (occurrence: None)
  Receive Date: 20111122
  Receipt Date: 20111114
  Transmission Date: 20120403
  Serious: Yes (Hospitalization, Other)
  Sender: FDA-Public Use
  Company Number: CA-ASTRAZENECA-2011SE68831

PATIENT
  Age: 80 Year
  Sex: Male
  Weight: 108 kg

DRUGS (16)
  1. AMILORIDE HYDROCHLORIDE [Suspect]
     Route: 048
  2. SPIRONOLACTONE [Suspect]
     Route: 048
  3. TYLENOL W/ CODEINE NO. 3 [Concomitant]
     Route: 048
  4. METFORMIN HCL [Suspect]
     Route: 048
  5. EZETIMIBE [Concomitant]
     Route: 048
  6. FUROSEMIDE [Concomitant]
     Route: 048
  7. TAMSULOSIN HCL [Concomitant]
     Route: 048
  8. METOPROLOL TARTRATE [Concomitant]
     Route: 048
  9. ATACAND [Suspect]
     Route: 048
  10. NITROLINGUAL PUMPSPRAY [Concomitant]
     Route: 060
  11. ASPIRIN [Concomitant]
     Route: 048
  12. NITROGLYCERIN [Concomitant]
     Route: 062
  13. PANTOPRAZOLE [Concomitant]
     Route: 048
  14. ALLOPURINOL [Concomitant]
     Route: 048
  15. INSULIN [Concomitant]
     Dosage: 30/70
     Route: 058
  16. PLAVIX [Concomitant]
     Route: 048

REACTIONS (6)
  - ASTHENIA [None]
  - NEPHROPATHY TOXIC [None]
  - RENAL FAILURE ACUTE [None]
  - MALAISE [None]
  - URINARY RETENTION [None]
  - BLOOD CREATININE INCREASED [None]
